FAERS Safety Report 8192421-9 (Version None)
Quarter: 2012Q1

REPORT INFORMATION
  Report Type: 
  Country: None (occurrence: None)
  Receive Date: 20120308
  Receipt Date: 20120227
  Transmission Date: 20120608
  Serious: Yes (Other)
  Sender: FDA-Public Use
  Company Number: US-BIOGENIDEC-2012BI007360

PATIENT
  Sex: Female

DRUGS (8)
  1. AVONEX [Suspect]
     Indication: MULTIPLE SCLEROSIS
     Route: 030
  2. ERGOCALCIFEROL [Concomitant]
     Route: 048
  3. LIDODERM [Concomitant]
  4. ZOLPIDEM TARTRATE [Concomitant]
     Route: 048
  5. GABAPENTIN [Concomitant]
     Route: 048
  6. LIDOCAINE [Concomitant]
     Indication: PAIN
  7. LAMOTRIGINE [Concomitant]
  8. OXYCODONE/ACETAMINOPHEN [Concomitant]
     Indication: PAIN
     Route: 048

REACTIONS (3)
  - PATELLA FRACTURE [None]
  - MYELITIS TRANSVERSE [None]
  - PARTIAL SEIZURES [None]
